FAERS Safety Report 17380567 (Version 1)
Quarter: 2020Q1

REPORT INFORMATION
  Report Type: Spontaneous
  Country: US (occurrence: US)
  Receive Date: 20200206
  Receipt Date: 20200206
  Transmission Date: 20200409
  Serious: No
  Sender: FDA-Public Use
  Company Number: NVSC2020US030642

PATIENT
  Sex: Female

DRUGS (1)
  1. TYKERB [Suspect]
     Active Substance: LAPATINIB DITOSYLATE
     Indication: BREAST CANCER FEMALE
     Dosage: 250 MG (TAKE 5 TABLETS BY MOUTH EVERY DAY)
     Route: 048

REACTIONS (4)
  - Dermatitis acneiform [Unknown]
  - Rash [Recovered/Resolved]
  - Contrast media allergy [Unknown]
  - Product dose omission [Unknown]
